FAERS Safety Report 4784010-0 (Version None)
Quarter: 2005Q3

REPORT INFORMATION
  Report Type: 
  Country: None (occurrence: None)
  Receive Date: 20050927
  Receipt Date: 20050817
  Transmission Date: 20060218
  Serious: No
  Sender: FDA-Public Use
  Company Number: SP00487

PATIENT
  Sex: Female

DRUGS (1)
  1. XIFAXAN [Suspect]
     Indication: GASTROINTESTINAL INFECTION
     Dosage: 200MG/TID,ORAL
     Route: 048
     Dates: start: 20050812

REACTIONS (1)
  - FEELING ABNORMAL [None]
